FAERS Safety Report 25450686 (Version 2)
Quarter: 2025Q2

REPORT INFORMATION
  Report Type: Report from Study
  Country: US (occurrence: US)
  Receive Date: 20250618
  Receipt Date: 20250619
  Transmission Date: 20250717
  Serious: Yes (Life-Threatening)
  Sender: NOVARTIS
  Company Number: US-002147023-NVSC2024US043256

PATIENT
  Sex: Female

DRUGS (1)
  1. COSENTYX [Suspect]
     Active Substance: SECUKINUMAB
     Indication: Psoriasis
     Dosage: 300 MG, QMO
     Route: 058
     Dates: start: 20230501

REACTIONS (16)
  - Feeling abnormal [Unknown]
  - Speech disorder developmental [Unknown]
  - Unevaluable event [Unknown]
  - Skin burning sensation [Unknown]
  - Somnolence [Unknown]
  - Mood altered [Unknown]
  - Illness [Unknown]
  - Psoriasis [Unknown]
  - Skin disorder [Unknown]
  - Rash [Unknown]
  - Skin haemorrhage [Unknown]
  - Dyspnoea [Unknown]
  - Arthritis [Unknown]
  - Pain [Unknown]
  - Haemorrhage [Unknown]
  - Symptom recurrence [Not Recovered/Not Resolved]
